FAERS Safety Report 16292567 (Version 1)
Quarter: 2019Q2

REPORT INFORMATION
  Report Type: Spontaneous
  Country: US (occurrence: US)
  Receive Date: 20190509
  Receipt Date: 20190509
  Transmission Date: 20190711
  Serious: No
  Sender: FDA-Public Use
  Company Number: US-ALKERMES INC.-ALK-2018-003431

PATIENT
  Age: 63 Year
  Sex: Female

DRUGS (2)
  1. NOVOCAINE [Suspect]
     Active Substance: PROCAINE
     Indication: DENTAL OPERATION
     Dosage: 10 DF, UNK
  2. VIVITROL [Suspect]
     Active Substance: NALTREXONE
     Indication: ALCOHOLISM
     Dosage: 380 MG, QMO
     Route: 030
     Dates: start: 201710, end: 201803

REACTIONS (5)
  - Feeling abnormal [Unknown]
  - Drug abuse [Unknown]
  - Inadequate analgesia [Unknown]
  - Dental operation [Unknown]
  - Anxiety [Not Recovered/Not Resolved]
